FAERS Safety Report 5977150-1 (Version None)
Quarter: 2008Q4

REPORT INFORMATION
  Report Type: 
  Country: None (occurrence: None)
  Receive Date: 20081201
  Receipt Date: 20081201
  Transmission Date: 20090506
  Serious: Yes (Hospitalization)
  Sender: FDA-Public Use
  Company Number: None

PATIENT
  Sex: Female
  Weight: 48 kg

DRUGS (2)
  1. CARBOPLATIN [Suspect]
     Dosage: 573 MG
     Dates: end: 20081120
  2. TAXOL [Suspect]
     Dosage: 277 MG
     Dates: end: 20081120

REACTIONS (10)
  - ASPARTATE AMINOTRANSFERASE INCREASED [None]
  - BLOOD CHLORIDE DECREASED [None]
  - BLOOD GLUCOSE INCREASED [None]
  - BLOOD SODIUM DECREASED [None]
  - CONSTIPATION [None]
  - NAUSEA [None]
  - NEUTROPHIL COUNT ABNORMAL [None]
  - PLATELET COUNT INCREASED [None]
  - VOMITING [None]
  - WHITE BLOOD CELL COUNT DECREASED [None]
